FAERS Safety Report 25418434 (Version 2)
Quarter: 2025Q3

REPORT INFORMATION
  Report Type: Spontaneous
  Country: JP (occurrence: JP)
  Receive Date: 20250610
  Receipt Date: 20250724
  Transmission Date: 20251020
  Serious: Yes (Hospitalization)
  Sender: AMGEN
  Company Number: JP-AMGEN-JPNSP2025110067

PATIENT
  Age: 6 Decade
  Sex: Female

DRUGS (2)
  1. IMDELLTRA [Suspect]
     Active Substance: TARLATAMAB-DLLE
     Indication: Small cell lung cancer
     Route: 040
     Dates: start: 20250513
  2. IMDELLTRA [Suspect]
     Active Substance: TARLATAMAB-DLLE
     Route: 040
     Dates: start: 20250602

REACTIONS (2)
  - Cytokine release syndrome [Unknown]
  - Off label use [Unknown]

NARRATIVE: CASE EVENT DATE: 20250513
